FAERS Safety Report 18422681 (Version 6)
Quarter: 2023Q1

REPORT INFORMATION
  Report Type: Spontaneous
  Country: US (occurrence: US)
  Receive Date: 20201023
  Receipt Date: 20230227
  Transmission Date: 20230418
  Serious: Yes (Other)
  Sender: FDA-Public Use
  Company Number: US-PFIZER INC-2020411014

PATIENT
  Age: 74 Year
  Sex: Female

DRUGS (1)
  1. XELJANZ XR [Suspect]
     Active Substance: TOFACITINIB CITRATE
     Dosage: 11 MG, DAILY

REACTIONS (6)
  - Hip arthroplasty [Unknown]
  - Blood pressure abnormal [Unknown]
  - Abdominal discomfort [Unknown]
  - Back pain [Unknown]
  - Spinal pain [Unknown]
  - Gait disturbance [Unknown]
